FAERS Safety Report 17157667 (Version 1)
Quarter: 2019Q4

REPORT INFORMATION
  Report Type: Spontaneous
  Country: US (occurrence: US)
  Receive Date: 20191213
  Receipt Date: 20191213
  Transmission Date: 20200122
  Serious: No
  Sender: FDA-Public Use
  Company Number: None

PATIENT
  Sex: Female

DRUGS (10)
  1. LABETALOL HCL [Suspect]
     Active Substance: LABETALOL HYDROCHLORIDE
  2. DULOXETINE HCL DR 60MG CAPSULE [Concomitant]
     Active Substance: DULOXETINE HYDROCHLORIDE
  3. LEVOTHYROXINE. [Suspect]
     Active Substance: LEVOTHYROXINE
     Route: 048
  4. FREESTYLE LIBRE 14 DAY READER [Concomitant]
  5. VIT D2 1.25MG (50,000 UNIT) [Concomitant]
  6. FUROSEMIDE 40MG TABLET [Concomitant]
     Active Substance: FUROSEMIDE SODIUM
  7. LEVOTHYROXINE 137MCG TABLET [Concomitant]
  8. LANTUS SOLOSTAR 100UNITS/ML [Concomitant]
  9. NOVOLOG [Concomitant]
     Active Substance: INSULIN ASPART
  10. FREESTYLE LIBRE 14 DAY SENSOR [Concomitant]

REACTIONS (1)
  - Hospitalisation [None]
